FAERS Safety Report 5126929-7 (Version None)
Quarter: 2006Q4

REPORT INFORMATION
  Report Type: 
  Country: None (occurrence: None)
  Receive Date: 20061010
  Receipt Date: 20060928
  Transmission Date: 20070319
  Serious: Yes (Other)
  Sender: FDA-Public Use
  Company Number: 2006119408

PATIENT
  Age: 65 Year
  Sex: Female
  Weight: 104.3273 kg

DRUGS (5)
  1. LYRICA [Suspect]
     Indication: ABDOMINAL DISCOMFORT
     Dosage: 150 MG (75 MG, 2 IN 1 D)
     Dates: start: 20060905, end: 20060927
  2. OXYCONTIN [Concomitant]
  3. ZOLOFT [Concomitant]
  4. LEVOXYL [Concomitant]
  5. AMBIEN [Concomitant]

REACTIONS (6)
  - ASTHENIA [None]
  - DYSPHONIA [None]
  - LARYNGEAL OEDEMA [None]
  - OEDEMA PERIPHERAL [None]
  - PAIN IN EXTREMITY [None]
  - WEIGHT INCREASED [None]
